FAERS Safety Report 9106789 (Version 2)
Quarter: 2013Q1

REPORT INFORMATION
  Report Type: Report from Study
  Country: US (occurrence: US)
  Receive Date: 20130221
  Receipt Date: 20130304
  Transmission Date: 20140127
  Serious: Yes (Other)
  Sender: FDA-Public Use
  Company Number: US-ABBOTT-13P-163-1049943-00

PATIENT
  Sex: Male

DRUGS (5)
  1. HUMIRA [Suspect]
     Indication: PSORIASIS
     Route: 058
     Dates: start: 2006
  2. HUMIRA [Suspect]
     Dates: start: 201211, end: 201302
  3. HUMIRA [Suspect]
     Dates: start: 201302
  4. ENBREL [Concomitant]
     Indication: PSORIASIS
  5. CIMZIA [Concomitant]
     Indication: PSORIASIS

REACTIONS (4)
  - Vein disorder [Recovered/Resolved]
  - Pain in extremity [Recovered/Resolved]
  - Pain in extremity [Not Recovered/Not Resolved]
  - Drug ineffective [Unknown]
